FAERS Safety Report 15965379 (Version 1)
Quarter: 2019Q1

REPORT INFORMATION
  Report Type: Spontaneous
  Country: FR (occurrence: FR)
  Receive Date: 20190215
  Receipt Date: 20190215
  Transmission Date: 20190418
  Serious: Yes (Hospitalization, Other)
  Sender: FDA-Public Use
  Company Number: FR-TEVA-2019-FR-1011530

PATIENT
  Age: 77 Year
  Sex: Female
  Weight: 72 kg

DRUGS (6)
  1. KARDEGIC [Suspect]
     Active Substance: ASPIRIN DL-LYSINE
     Dosage: 1 DOSAGE FORMS DAILY;
     Route: 048
     Dates: start: 20000114, end: 20031211
  2. ELISOR [Suspect]
     Active Substance: PRAVASTATIN SODIUM
     Route: 048
  3. DIAFUSOR [Suspect]
     Active Substance: NITROGLYCERIN
     Route: 062
  4. GLICLAZIDE 80 MG NOS [Suspect]
     Active Substance: GLICLAZIDE
     Route: 065
  5. METFORMIN [Suspect]
     Active Substance: METFORMIN HYDROCHLORIDE
     Route: 048
  6. SOPROL (BISOPROLOL FUMARATE) [Suspect]
     Active Substance: BISOPROLOL FUMARATE
     Route: 065

REACTIONS (4)
  - Left ventricular failure [Recovered/Resolved]
  - Melaena [Recovered/Resolved]
  - Anaemia [Recovered/Resolved]
  - Gastric ulcer [Recovered/Resolved]

NARRATIVE: CASE EVENT DATE: 20031211
